FAERS Safety Report 10026768 (Version 1)
Quarter: 2014Q1

REPORT INFORMATION
  Report Type: Spontaneous
  Country: FR (occurrence: None)
  Receive Date: 20140318
  Receipt Date: 20140318
  Transmission Date: 20141002
  Serious: Yes (Other)
  Sender: FDA-Public Use
  Company Number: VAL_03033_2014

PATIENT
  Age: 51 Year
  Sex: Female

DRUGS (3)
  1. BENAZEPRIL HYDROCHLORIDE [Suspect]
     Indication: PRODUCT USED FOR UNKNOWN INDICATION
     Dates: start: 20131003, end: 20131003
  2. RAMIPRIL (RAMIPRIL) [Suspect]
     Indication: PRODUCT USED FOR UNKNOWN INDICATION
     Route: 048
     Dates: start: 2013, end: 20131003
  3. BISOPROLOL (BISOPROLOL) [Suspect]
     Indication: PRODUCT USED FOR UNKNOWN INDICATION
     Route: 048
     Dates: start: 2013, end: 20131003

REACTIONS (7)
  - Fatigue [None]
  - Vertigo [None]
  - Dizziness [None]
  - Lethargy [None]
  - Somnolence [None]
  - Hypotension [None]
  - Accidental overdose [None]
